FAERS Safety Report 9540532 (Version 2)
Quarter: 2013Q4

REPORT INFORMATION
  Report Type: Spontaneous
  Country: JP (occurrence: JP)
  Receive Date: 20130920
  Receipt Date: 20131002
  Transmission Date: 20140711
  Serious: Yes (Other)
  Sender: FDA-Public Use
  Company Number: JP-PFIZER INC-2013271510

PATIENT
  Age: 16 Year
  Sex: Female

DRUGS (2)
  1. JZOLOFT [Suspect]
     Dosage: 25 MG/DAY
     Route: 048
     Dates: start: 20090806, end: 20090906
  2. JZOLOFT [Suspect]
     Dosage: 50 MG/DAY
     Route: 048
     Dates: start: 20090907, end: 20090930

REACTIONS (1)
  - Electrocardiogram QT prolonged [Recovered/Resolved]
